FAERS Safety Report 7701123-1 (Version None)
Quarter: 2011Q3

REPORT INFORMATION
  Report Type: 
  Country: None (occurrence: None)
  Receive Date: 20110819
  Receipt Date: 20110819
  Transmission Date: 20111222
  Serious: Yes (Life-Threatening, Hospitalization)
  Sender: FDA-Public Use
  Company Number: None

PATIENT
  Age: 59 Year
  Sex: Female
  Weight: 54.5 kg

DRUGS (1)
  1. METHADONE HYDROCHLORIDE [Suspect]
     Indication: DRUG DEPENDENCE
     Dosage: 140MG DAILY PO
     Route: 048
     Dates: start: 19960101

REACTIONS (2)
  - TORSADE DE POINTES [None]
  - FALL [None]
